FAERS Safety Report 7063503-X (Version None)
Quarter: 2010Q4

REPORT INFORMATION
  Report Type: 
  Country: None (occurrence: None)
  Receive Date: 20101026
  Receipt Date: 20100607
  Transmission Date: 20110411
  Serious: No
  Sender: FDA-Public Use
  Company Number: US-ABBOTT-10P-163-0628012-00

PATIENT
  Sex: Female
  Weight: 45.854 kg

DRUGS (1)
  1. LUPRON DEPOT [Suspect]
     Indication: ENDOMETRIOSIS
     Dosage: UNKNOWN DOSE
     Route: 050
     Dates: start: 20100201

REACTIONS (6)
  - HEADACHE [None]
  - HOT FLUSH [None]
  - MIDDLE INSOMNIA [None]
  - NIGHT SWEATS [None]
  - SEXUAL DYSFUNCTION [None]
  - VULVOVAGINAL DRYNESS [None]
